FAERS Safety Report 5382920-7 (Version None)
Quarter: 2007Q3

REPORT INFORMATION
  Report Type: 
  Country: None (occurrence: None)
  Receive Date: 20070710
  Receipt Date: 20070704
  Transmission Date: 20080115
  Serious: Yes (Death, Hospitalization)
  Sender: FDA-Public Use
  Company Number: GB-SANOFI-SYNTHELABO-F01200700704

PATIENT
  Sex: Male
  Weight: 58 kg

DRUGS (5)
  1. TAZOCIN [Concomitant]
     Route: 042
     Dates: start: 20070515
  2. FLUOROURACIL [Suspect]
     Dosage: 400 MG/M2 BOLUS FOLLOWED BY A 46 HOUR INFUSION OF 2400 MG/M2
     Route: 041
     Dates: start: 20070503, end: 20070503
  3. CAPECITABINE [Suspect]
     Dosage: 1000 MG/M2 BID DAYS 1-14
     Route: 048
     Dates: start: 20061103, end: 20061227
  4. CETUXIMAB [Suspect]
     Dosage: 400 MG/M2 LOADING DOSE FOLLOWED BY A WEEKLY INFUSION OF 250 MG/M2
     Route: 041
     Dates: start: 20061103, end: 20070510
  5. OXALIPLATIN [Suspect]
     Indication: COLORECTAL CANCER METASTATIC
     Route: 041
     Dates: start: 20070503, end: 20070503

REACTIONS (2)
  - DUODENAL ULCER [None]
  - HAEMORRHAGE [None]
